FAERS Safety Report 7256413-6 (Version None)
Quarter: 2011Q1

REPORT INFORMATION
  Report Type: 
  Country: None (occurrence: None)
  Receive Date: 20110129
  Receipt Date: 20100721
  Transmission Date: 20110831
  Serious: No
  Sender: FDA-Public Use
  Company Number: US-ABBOTT-10P-163-0659015-00

PATIENT
  Age: 50 Year
  Sex: Female

DRUGS (9)
  1. MULTIVITAMINS WITH IRON [Concomitant]
     Indication: PRODUCT USED FOR UNKNOWN INDICATION
  2. ATENOLOL [Concomitant]
     Indication: HYPERTENSION
  3. PROZAC [Concomitant]
     Indication: ANXIETY
  4. HUMIRA [Suspect]
     Indication: PSORIASIS
     Dates: start: 20100401, end: 20100703
  5. CYCLOBENZAPRINE [Concomitant]
     Indication: PAIN
  6. SUDAFEDRIN [Concomitant]
     Indication: SEASONAL ALLERGY
  7. TYLENOL-500 [Concomitant]
     Indication: PAIN
  8. SINGULAIR [Concomitant]
     Indication: SEASONAL ALLERGY
  9. GLUCOTROL [Concomitant]
     Indication: DIABETES MELLITUS

REACTIONS (7)
  - MALAISE [None]
  - ARTHRALGIA [None]
  - FEELING HOT [None]
  - SINUSITIS [None]
  - BLOOD GLUCOSE ABNORMAL [None]
  - RASH PRURITIC [None]
  - ERYTHEMA [None]
